FAERS Safety Report 7266835-5 (Version None)
Quarter: 2011Q1

REPORT INFORMATION
  Report Type: 
  Country: None (occurrence: None)
  Receive Date: 20110121
  Receipt Date: 20110110
  Transmission Date: 20110831
  Serious: Yes (Hospitalization, Other)
  Sender: FDA-Public Use
  Company Number: 2011SP001706

PATIENT
  Age: 25 Year
  Sex: Male

DRUGS (1)
  1. CORICIDIN [Suspect]
     Indication: PRODUCT USED FOR UNKNOWN INDICATION
     Dosage: PO
     Route: 048

REACTIONS (16)
  - OVERDOSE [None]
  - FEELING HOT [None]
  - HEART RATE INCREASED [None]
  - DEPRESSION [None]
  - DRUG ABUSE [None]
  - CRYING [None]
  - FEELING ABNORMAL [None]
  - UNRESPONSIVE TO STIMULI [None]
  - AGGRESSION [None]
  - CONFUSIONAL STATE [None]
  - DELUSION [None]
  - ERYTHEMA [None]
  - BIPOLAR DISORDER [None]
  - INSOMNIA [None]
  - PSYCHOTIC DISORDER [None]
  - MANIA [None]
